FAERS Safety Report 8781238 (Version 2)
Quarter: 2012Q4

REPORT INFORMATION
  Report Type: 
  Country: US (occurrence: US)
  Receive Date: 20120913
  Receipt Date: 20121109
  Transmission Date: 20130627
  Serious: Yes (Death)
  Sender: FDA-Public Use
  Company Number: US-ROCHE-1125566

PATIENT
  Sex: Male
  Weight: 80.81 kg

DRUGS (3)
  1. AVASTIN [Suspect]
     Indication: COLON CANCER METASTATIC
     Route: 042
     Dates: start: 20120302, end: 20120608
  2. IRINOTECAN [Concomitant]
     Route: 042
     Dates: start: 20120302, end: 20120608
  3. XELODA [Concomitant]
     Route: 048

REACTIONS (1)
  - Colon cancer metastatic [Fatal]
